FAERS Safety Report 6081767-6 (Version None)
Quarter: 2009Q1

REPORT INFORMATION
  Report Type: 
  Country: None (occurrence: None)
  Receive Date: 20090126
  Receipt Date: 20070618
  Transmission Date: 20090719
  Serious: Yes (Other)
  Sender: FDA-Public Use
  Company Number: EUR 0191 (WATSON 2007-02983)

PATIENT
  Age: 41 Year
  Sex: Female

DRUGS (4)
  1. POTASSIUM CHLORIDE TAB [Suspect]
     Dosage: 3 TABS BID, PO
     Route: 048
     Dates: start: 20070501
  2. PAROXETINE HCL [Concomitant]
  3. NORVASC [Concomitant]
  4. TRIAMETRENE [Concomitant]

REACTIONS (6)
  - CHOKING [None]
  - DIZZINESS [None]
  - INFECTION [None]
  - OROPHARYNGEAL PAIN [None]
  - PRESYNCOPE [None]
  - VERTIGO [None]
